FAERS Safety Report 5587290-7 (Version None)
Quarter: 2007Q4

REPORT INFORMATION
  Report Type: 
  Country: None (occurrence: None)
  Receive Date: 20071207
  Receipt Date: 20061129
  Transmission Date: 20080405
  Serious: Yes (Hospitalization, Other)
  Sender: FDA-Public Use
  Company Number: 2006147319

PATIENT
  Age: 72 Year
  Sex: Male

DRUGS (2)
  1. VIAGRA [Suspect]
     Dosage: (100 MG,40 IN 3 D)
  2. ORGANIC NITRATES (ORGANIC NITRATES) [Concomitant]

REACTIONS (2)
  - CHEST PAIN [None]
  - OVERDOSE [None]
